FAERS Safety Report 5099278-3 (Version None)
Quarter: 2006Q3

REPORT INFORMATION
  Report Type: 
  Country: None (occurrence: None)
  Receive Date: 20060731
  Receipt Date: 20051025
  Transmission Date: 20061208
  Serious: Yes (Other)
  Sender: FDA-Public Use
  Company Number: US-2005-022428

PATIENT
  Age: 21 Year
  Sex: Male
  Weight: 66 kg

DRUGS (12)
  1. MAGNEVIST [Suspect]
     Indication: NUCLEAR MAGNETIC RESONANCE IMAGING BRAIN
     Dosage: 14 ML, 1 DOSE, INTRAVENOUS
     Route: 042
     Dates: start: 20051025, end: 20051025
  2. VALIUM [Concomitant]
  3. VICODIN [Concomitant]
  4. NUTREN 1.0 LIQUID (TAURINE, CARNITINE, PROTEINS NOS) [Concomitant]
  5. ZOLOFT [Concomitant]
  6. DARVOCET-N (DEXTROPROPOXYPHENE NAPSILATE) [Concomitant]
  7. MOTRIN [Concomitant]
  8. TYLENOL [Concomitant]
  9. NEURONTIN [Concomitant]
  10. WELLBUTIN (BUPROPION HYDROCHLORIDE) [Concomitant]
  11. ZOLFLEX [Concomitant]
  12. HOTPRAFIC [Concomitant]

REACTIONS (6)
  - BURNING SENSATION [None]
  - CHEST DISCOMFORT [None]
  - EYE PRURITUS [None]
  - EYE SWELLING [None]
  - OCULAR HYPERAEMIA [None]
  - THROAT TIGHTNESS [None]
